FAERS Safety Report 9441512 (Version 1)
Quarter: 2013Q3

REPORT INFORMATION
  Report Type: Spontaneous
  Country: DE (occurrence: DE)
  Receive Date: 20130805
  Receipt Date: 20130805
  Transmission Date: 20140515
  Serious: Yes (Other)
  Sender: FDA-Public Use
  Company Number: DE-MYLANLABS-2013S1016351

PATIENT
  Age: 1 Day
  Sex: Female
  Weight: 1.79 kg

DRUGS (4)
  1. METOPROLOL [Suspect]
     Dosage: 200 [MG/D ]/ 100MG/D IM 1. TRIM., 200MG/D IM 2.+3. TRIM.
     Route: 064
  2. NEPRESOL /00007602/ [Suspect]
     Dosage: 50 [MG/D ]
     Route: 064
  3. PRESINOL [Concomitant]
     Route: 064
  4. FOLIC ACID [Concomitant]
     Route: 064

REACTIONS (3)
  - Small for dates baby [Recovered/Resolved]
  - Vomiting neonatal [Recovered/Resolved]
  - Exposure during pregnancy [Recovered/Resolved]
